FAERS Safety Report 6268900-8 (Version None)
Quarter: 2009Q3

REPORT INFORMATION
  Report Type: 
  Country: None (occurrence: None)
  Receive Date: 20090709
  Receipt Date: 20090709
  Transmission Date: 20100115
  Serious: Yes (Other)
  Sender: FDA-Public Use
  Company Number: None

PATIENT
  Age: 50 Year
  Sex: Male
  Weight: 84.369 kg

DRUGS (1)
  1. ATACAND [Suspect]
     Indication: PREHYPERTENSION
     Dosage: 32MG DAILY PO
     Route: 048
     Dates: start: 20090415, end: 20090705

REACTIONS (4)
  - ABDOMINAL PAIN [None]
  - ANXIETY [None]
  - HEART RATE INCREASED [None]
  - RESPIRATORY DISTRESS [None]
